FAERS Safety Report 19895442 (Version 1)
Quarter: 2021Q3

REPORT INFORMATION
  Report Type: Spontaneous
  Country: US (occurrence: US)
  Receive Date: 20210929
  Receipt Date: 20210929
  Transmission Date: 20211014
  Serious: Yes (Hospitalization)
  Sender: FDA-Public Use
  Company Number: None

PATIENT
  Age: 65 Year
  Sex: Male
  Weight: 57 kg

DRUGS (1)
  1. METHOTREXATE (METHOTREXATE NA 2.5MG TAB, UD) [Suspect]
     Active Substance: METHOTREXATE SODIUM
     Indication: RHEUMATOID ARTHRITIS
     Dates: start: 20210512, end: 20210618

REACTIONS (13)
  - Asthenia [None]
  - Thrombocytopenia [None]
  - Hepatic enzyme increased [None]
  - Anaemia [None]
  - Scrotal ulcer [None]
  - Leukopenia [None]
  - Aphthous ulcer [None]
  - Toxicity to various agents [None]
  - Pancytopenia [None]
  - Skin ulcer [None]
  - Mouth ulceration [None]
  - Rectal ulcer [None]
  - Transaminases increased [None]

NARRATIVE: CASE EVENT DATE: 20210618
